FAERS Safety Report 5689828-8 (Version None)
Quarter: 2008Q1

REPORT INFORMATION
  Report Type: 
  Country: None (occurrence: None)
  Receive Date: 20080331
  Receipt Date: 20080331
  Transmission Date: 20080703
  Serious: Yes (Life-Threatening)
  Sender: FDA-Public Use
  Company Number: None

PATIENT
  Age: 9 Year
  Sex: Female
  Weight: 25.4014 kg

DRUGS (1)
  1. SINGULAIR [Suspect]
     Indication: MULTIPLE ALLERGIES
     Dosage: ONE TABLET ONCE A DAY PO
     Route: 048
     Dates: start: 20070515, end: 20080327

REACTIONS (2)
  - AGGRESSION [None]
  - SELF-INJURIOUS IDEATION [None]
